FAERS Safety Report 7831576-X (Version None)
Quarter: 2011Q4

REPORT INFORMATION
  Report Type: 
  Country: None (occurrence: None)
  Receive Date: 20111021
  Receipt Date: 20111018
  Transmission Date: 20120403
  Serious: Yes (Hospitalization, Other)
  Sender: FDA-Public Use
  Company Number: US-B.I. PHARMACEUTICALS,INC./RIDGEFIELD-2011-BP-22037BP

PATIENT
  Sex: Male

DRUGS (15)
  1. MIRALAX [Concomitant]
     Dosage: 17 G
  2. COREG [Concomitant]
     Dosage: 6.25 MG
  3. IMDUR [Concomitant]
     Dosage: 30 MG
  4. LEVOXYL [Concomitant]
     Dosage: 50 MCG
  5. PRADAXA [Suspect]
     Indication: ATRIAL FIBRILLATION
     Dosage: 300 MG
     Dates: start: 20110904, end: 20110907
  6. PRADAXA [Suspect]
     Indication: ATRIAL FLUTTER
  7. AVODART [Concomitant]
     Dosage: 0.5 MG
  8. POTASSIUM [Concomitant]
     Dosage: 20 MEQ
  9. DEMECLOCYCLINE HCL [Concomitant]
     Dosage: 600 MG
  10. CELEXA [Concomitant]
     Dosage: 10 MG
  11. PLAVIX [Concomitant]
     Dosage: 75 MG
  12. SIMVASTATIN [Concomitant]
     Dosage: 20 MG
  13. LASIX [Concomitant]
  14. FLOMAX [Concomitant]
     Dosage: 0.4 MG
  15. LUNESTA [Concomitant]
     Dosage: 2 MG

REACTIONS (2)
  - OESOPHAGEAL ULCER [None]
  - ODYNOPHAGIA [None]
